FAERS Safety Report 14659340 (Version 1)
Quarter: 2018Q1

REPORT INFORMATION
  Report Type: Spontaneous
  Country: US (occurrence: US)
  Receive Date: 20180317
  Receipt Date: 20180317
  Transmission Date: 20180509
  Serious: No
  Sender: FDA-Public Use
  Company Number: None

PATIENT
  Sex: Male

DRUGS (1)
  1. HUMIRA [Suspect]
     Active Substance: ADALIMUMAB
     Indication: ILL-DEFINED DISORDER
     Route: 058
     Dates: start: 20161012

REACTIONS (6)
  - Confusional state [None]
  - Lethargy [None]
  - Dizziness [None]
  - Head discomfort [None]
  - Memory impairment [None]
  - Fatigue [None]
